FAERS Safety Report 8801140 (Version 2)
Quarter: 2013Q2

REPORT INFORMATION
  Report Type: Spontaneous
  Country: ZA (occurrence: ZA)
  Receive Date: 20120920
  Receipt Date: 20130502
  Transmission Date: 20140414
  Serious: Yes (Life-Threatening, Hospitalization)
  Sender: FDA-Public Use
  Company Number: ZA-ROCHE-1130260

PATIENT
  Sex: Male
  Weight: 58 kg

DRUGS (4)
  1. AVASTIN [Suspect]
     Indication: RECTAL CANCER
     Route: 065
     Dates: start: 20120718
  2. AVASTIN [Suspect]
     Route: 065
     Dates: start: 20120815
  3. OXALIPLATIN [Concomitant]
     Route: 041
  4. XELODA [Concomitant]
     Route: 065

REACTIONS (5)
  - Thyroiditis [Recovering/Resolving]
  - Hypophysitis [Recovering/Resolving]
  - Pancreatitis [Recovering/Resolving]
  - Cardiomyopathy [Recovering/Resolving]
  - Pruritus [Recovered/Resolved]
